FAERS Safety Report 16225420 (Version 2)
Quarter: 2019Q3

REPORT INFORMATION
  Report Type: Report from Study
  Country: US (occurrence: US)
  Receive Date: 20190422
  Receipt Date: 20190710
  Transmission Date: 20191004
  Serious: Yes (Hospitalization)
  Sender: FDA-Public Use
  Company Number: US-PFIZER INC-2019156680

PATIENT
  Age: 64 Year
  Sex: Female
  Weight: 67.6 kg

DRUGS (19)
  1. MAGNESIUM [Concomitant]
     Active Substance: MAGNESIUM
     Indication: MINERAL SUPPLEMENTATION
     Dosage: UNK UNK, QD
     Route: 048
     Dates: start: 20181017
  2. ATIVAN [Concomitant]
     Active Substance: LORAZEPAM
     Indication: ANXIETY
     Dosage: 0.5 MG, QUANTITY: 60 TABLET, TAKE 1-2 TABS PRN
     Route: 048
     Dates: start: 20181204, end: 20190102
  3. ADVIL PM [Concomitant]
     Active Substance: DIPHENHYDRAMINE CITRATE\IBUPROFEN
     Indication: CANCER PAIN
     Dosage: UNK,  NIGHTLY AS NEEDED
     Route: 048
     Dates: start: 20181218
  4. IBRANCE [Suspect]
     Active Substance: PALBOCICLIB
     Dosage: 100 MG, QD DAYS 1-21 OF EACH CYCLE
     Route: 048
     Dates: start: 20190129, end: 20190225
  5. VITAMIN D3 [Concomitant]
     Active Substance: CHOLECALCIFEROL
     Indication: VITAMIN D DEFICIENCY
     Dosage: UNK UNK, QD
     Route: 048
     Dates: start: 20181113, end: 20190102
  6. ZITHROMAX [Concomitant]
     Active Substance: AZITHROMYCIN DIHYDRATE
     Dosage: UNK, QD
     Route: 048
     Dates: start: 20190103, end: 20190106
  7. ATIVAN [Concomitant]
     Active Substance: LORAZEPAM
     Indication: SLEEP DISORDER
  8. ATIVAN [Concomitant]
     Active Substance: LORAZEPAM
     Indication: NAUSEA
  9. EMLA [LIDOCAINE;PRILOCAINE] [Concomitant]
     Indication: CANCER PAIN
     Dosage: UNK, QD
     Route: 061
     Dates: start: 20181204
  10. CETIRIZINE HCL [Concomitant]
     Active Substance: CETIRIZINE HYDROCHLORIDE
     Indication: SEASONAL ALLERGY
     Dosage: UNK UNK, PRN
     Route: 048
     Dates: start: 20181017
  11. ROXICODONE [Concomitant]
     Active Substance: OXYCODONE HYDROCHLORIDE
     Indication: CANCER PAIN
     Dosage: UNK UNK, PRN
     Route: 048
     Dates: start: 20181204, end: 20181218
  12. IBRANCE [Suspect]
     Active Substance: PALBOCICLIB
     Dosage: 75 MG, QD DAYS 1-21 OF EACH CYCLE
     Route: 048
     Dates: start: 20190226, end: 20190404
  13. TUCATINIB [Suspect]
     Active Substance: TUCATINIB
     Dosage: 600 MG, QD
     Route: 048
     Dates: start: 20181204, end: 20190326
  14. ACETAMINOPHEN. [Concomitant]
     Active Substance: ACETAMINOPHEN
     Indication: CANCER PAIN
     Dosage: UNK UNK, PRN
     Route: 048
     Dates: start: 20181218
  15. FISH OIL PO [Concomitant]
     Indication: SUPPLEMENTATION THERAPY
     Dosage: UNK UNK, QD
     Route: 048
     Dates: start: 20181115
  16. LETROZOLE. [Suspect]
     Active Substance: LETROZOLE
     Dosage: 2.5 MG, QD
     Route: 048
     Dates: start: 20181204, end: 20190408
  17. ZITHROMAX [Concomitant]
     Active Substance: AZITHROMYCIN DIHYDRATE
     Indication: NON-CARDIAC CHEST PAIN
     Dosage: UNK UNK, SINGLE
     Route: 048
     Dates: start: 20190102, end: 20190102
  18. IBRANCE [Suspect]
     Active Substance: PALBOCICLIB
     Dosage: 125 MG, QD DAYS 1-21 OF EACH CYCLE
     Route: 048
     Dates: start: 20181204, end: 20190128
  19. CALCIUM [Concomitant]
     Active Substance: CALCIUM
     Indication: MINERAL SUPPLEMENTATION
     Dosage: UNK UNK, QD
     Route: 048
     Dates: start: 20181115

REACTIONS (1)
  - Liver function test abnormal [Recovering/Resolving]

NARRATIVE: CASE EVENT DATE: 20190409
